FAERS Safety Report 19261988 (Version 1)
Quarter: 2021Q2

REPORT INFORMATION
  Report Type: Spontaneous
  Country: GB (occurrence: GB)
  Receive Date: 20210516
  Receipt Date: 20210516
  Transmission Date: 20210717
  Serious: Yes (Hospitalization)
  Sender: FDA-Public Use
  Company Number: GB-TEVA-2021-GB-1910618

PATIENT
  Age: 53 Year
  Sex: Female

DRUGS (1)
  1. BECLOMETHASONE [Suspect]
     Active Substance: BECLOMETHASONE
     Route: 065

REACTIONS (3)
  - Eye swelling [Recovered/Resolved]
  - Swelling [Recovered/Resolved]
  - Rash [Recovered/Resolved]

NARRATIVE: CASE EVENT DATE: 20210428
